FAERS Safety Report 4338988-X (Version None)
Quarter: 2004Q1

REPORT INFORMATION
  Report Type: 
  Country: None (occurrence: None)
  Receive Date: 20040329
  Receipt Date: 20040204
  Transmission Date: 20041129
  Serious: No
  Sender: FDA-Public Use
  Company Number: USA040258476

PATIENT
  Age: 8 Year
  Sex: Male
  Weight: 26 kg

DRUGS (4)
  1. STRATTERA [Suspect]
     Indication: ATTENTION DEFICIT/HYPERACTIVITY DISORDER
     Dosage: 40 MG/ IN THE EVENING
     Dates: start: 20031101
  2. CLOTTING FACTOR [Concomitant]
  3. SINGULAIR [Concomitant]
  4. RITALIN [Concomitant]

REACTIONS (3)
  - DISTURBANCE IN ATTENTION [None]
  - DRUG INEFFECTIVE [None]
  - PRESCRIBED OVERDOSE [None]
